FAERS Safety Report 4922497-0 (Version None)
Quarter: 2006Q1

REPORT INFORMATION
  Report Type: 
  Country: None (occurrence: None)
  Receive Date: 20060223
  Receipt Date: 20060223
  Transmission Date: 20060701
  Serious: No
  Sender: FDA-Public Use
  Company Number: None

PATIENT
  Sex: Male
  Weight: 89.2679 kg

DRUGS (1)
  1. VICOPROFEN [Suspect]
     Indication: PAIN
     Dosage: 7.5 / 750 PO MAX 5 PO QD
     Route: 048
     Dates: start: 20040613

REACTIONS (1)
  - DRUG INEFFECTIVE [None]
